FAERS Safety Report 5763468-4 (Version None)
Quarter: 2008Q2

REPORT INFORMATION
  Report Type: 
  Country: None (occurrence: None)
  Receive Date: 20080604
  Receipt Date: 20080604
  Transmission Date: 20081010
  Serious: No
  Sender: FDA-Public Use
  Company Number: None

PATIENT
  Age: 64 Year
  Sex: Male
  Weight: 97.3 kg

DRUGS (1)
  1. FORMOTEROL FUMARATE [Suspect]
     Indication: ASTHMA
     Dosage: 12 MCG BID INHALE
     Route: 055
     Dates: start: 20040316, end: 20080117

REACTIONS (2)
  - COUGH [None]
  - FOREIGN BODY TRAUMA [None]
